FAERS Safety Report 13710912 (Version 1)
Quarter: 2017Q3

REPORT INFORMATION
  Report Type: Spontaneous
  Country: FR (occurrence: FR)
  Receive Date: 20170703
  Receipt Date: 20170703
  Transmission Date: 20171127
  Serious: Yes (Other)
  Sender: FDA-Public Use
  Company Number: FR-BAYER-2017-125189

PATIENT
  Age: 35 Year
  Sex: Female
  Weight: 68 kg

DRUGS (1)
  1. MIRENA [Suspect]
     Active Substance: LEVONORGESTREL
     Indication: CONTRACEPTION
     Dosage: 20 MCG/24HR, CONT
     Route: 015
     Dates: start: 20120105, end: 20170314

REACTIONS (5)
  - Migraine [Unknown]
  - Menorrhagia [Unknown]
  - Weight increased [Unknown]
  - Fatigue [Unknown]
  - Affect lability [Unknown]

NARRATIVE: CASE EVENT DATE: 20120126
